FAERS Safety Report 8556660-7 (Version None)
Quarter: 2012Q3

REPORT INFORMATION
  Report Type: 
  Country: None (occurrence: None)
  Receive Date: 20120801
  Receipt Date: 20120723
  Transmission Date: 20120928
  Serious: Yes (Hospitalization)
  Sender: FDA-Public Use
  Company Number: US-BAYER-2012-023908

PATIENT
  Age: 30 Year
  Sex: Female
  Weight: 71.655 kg

DRUGS (6)
  1. YASMIN [Suspect]
     Indication: CONTRACEPTION
     Dosage: UNK
     Dates: start: 20080901, end: 20090301
  2. TYLENOL (CAPLET) [Concomitant]
     Indication: HEADACHE
  3. PROTONIX [Concomitant]
     Dosage: 40 MG, BID
  4. GLYCOPYRROLATE [Concomitant]
     Dosage: 1 MG, UNK
  5. CELEXA [Concomitant]
     Indication: DEPRESSION
     Dosage: UNK
     Dates: start: 20080101
  6. PRILOSEC [Concomitant]
     Dosage: 20 MG, BID
     Dates: start: 20080918

REACTIONS (9)
  - PAIN [None]
  - ABDOMINAL PAIN [None]
  - INJURY [None]
  - GENERAL PHYSICAL HEALTH DETERIORATION [None]
  - CHOLELITHIASIS [None]
  - CHOLECYSTITIS CHRONIC [None]
  - ANXIETY [None]
  - EMOTIONAL DISTRESS [None]
  - MENTAL DISORDER [None]
